FAERS Safety Report 7905912-X (Version None)
Quarter: 2011Q4

REPORT INFORMATION
  Report Type: 
  Country: None (occurrence: None)
  Receive Date: 20111110
  Receipt Date: 20111104
  Transmission Date: 20120403
  Serious: Yes (Hospitalization)
  Sender: FDA-Public Use
  Company Number: US-BRACCO-007103

PATIENT
  Age: 55 Year
  Sex: Male

DRUGS (2)
  1. IOPAMIDOL [Suspect]
     Indication: ARTERIOGRAM CORONARY
     Route: 042
  2. IOPAMIDOL [Suspect]
     Indication: CHEST DISCOMFORT
     Route: 042

REACTIONS (1)
  - CORONARY NO-REFLOW PHENOMENON [None]
